FAERS Safety Report 4687636-8 (Version None)
Quarter: 2005Q2

REPORT INFORMATION
  Report Type: 
  Country: None (occurrence: None)
  Receive Date: 20050609
  Receipt Date: 20050609
  Transmission Date: 20051028
  Serious: Yes (Disabling)
  Sender: FDA-Public Use
  Company Number: None

PATIENT
  Age: 75 Year
  Sex: Male
  Weight: 81.1939 kg

DRUGS (1)
  1. SILDENAFIL   100MG    PFIZER [Suspect]
     Indication: ERECTILE DYSFUNCTION
     Dosage: 100 MG ONCE PRN  SEXUAL ACTIVITY
     Dates: start: 20041004, end: 20050607

REACTIONS (1)
  - BLINDNESS UNILATERAL [None]
